FAERS Safety Report 7138104-5 (Version None)
Quarter: 2010Q4

REPORT INFORMATION
  Report Type: 
  Country: None (occurrence: None)
  Receive Date: 20101206
  Receipt Date: 20101129
  Transmission Date: 20110411
  Serious: No
  Sender: FDA-Public Use
  Company Number: US-JNJFOC-20101200669

PATIENT
  Sex: Male
  Weight: 52.62 kg

DRUGS (4)
  1. FENTANYL-100 [Suspect]
     Indication: NEOPLASM MALIGNANT
     Route: 062
  2. ANTI-HYPERTENSION MEDICATION, NOS [Concomitant]
     Indication: HYPERTENSION
     Route: 065
  3. CARDIAC MEDICATIONS (UNSPECIFIED) [Concomitant]
     Indication: CARDIAC DISORDER
     Route: 065
  4. ALL OTHER MEDICATIONS [Concomitant]
     Indication: THROMBOSIS PROPHYLAXIS
     Route: 065

REACTIONS (2)
  - DRUG INEFFECTIVE [None]
  - EXPIRED DRUG ADMINISTERED [None]
